FAERS Safety Report 8063376-2 (Version None)
Quarter: 2012Q1

REPORT INFORMATION
  Report Type: 
  Country: None (occurrence: None)
  Receive Date: 20120123
  Receipt Date: 20120116
  Transmission Date: 20120608
  Serious: Yes (Other)
  Sender: FDA-Public Use
  Company Number: US-SANOFI-AVENTIS-2012SA003113

PATIENT

DRUGS (5)
  1. BEVACIZUMAB [Suspect]
     Dosage: ON DAY 1 OF THE SECOND CYCLE, OVER 90 MINUTES
     Route: 042
  2. BEVACIZUMAB [Suspect]
     Dosage: ON DAY 1 OF THE THIRD CYCLE, OVER 60 MINUTES
     Route: 042
  3. DOCETAXEL [Suspect]
     Dosage: GIVEN OVER 60 MINUTES, AFTER THE COMPLETION OF FULL BEVACIZUMAB DOSE
     Route: 042
  4. BEVACIZUMAB [Suspect]
     Dosage: ON DAY 1OF THE FIRST CYCLE, OVER 120 MINUTES
     Route: 042
  5. BEVACIZUMAB [Suspect]
     Dosage: ON DAY1 OF THE SUBSEQUENT CYCLES, OVER 30 MINUTES
     Route: 042

REACTIONS (6)
  - RENAL FAILURE ACUTE [None]
  - ATAXIA [None]
  - FEBRILE NEUTROPENIA [None]
  - MUCOSAL INFLAMMATION [None]
  - RECTAL ABSCESS [None]
  - DEHYDRATION [None]
